FAERS Safety Report 8447471-1 (Version None)
Quarter: 2012Q2

REPORT INFORMATION
  Report Type: 
  Country: None (occurrence: None)
  Receive Date: 20120613
  Receipt Date: 20120613
  Transmission Date: 20120825
  Serious: Yes (Hospitalization)
  Sender: FDA-Public Use
  Company Number: None

PATIENT
  Sex: Male
  Weight: 65.45 kg

DRUGS (2)
  1. CISPLATIN [Suspect]
     Dosage: 47 MG
     Dates: end: 20120514
  2. TAXOL [Suspect]
     Dosage: 94 MG
     Dates: end: 20120514

REACTIONS (4)
  - ELECTROCARDIOGRAM T WAVE ABNORMAL [None]
  - PULMONARY EMBOLISM [None]
  - PULSE ABSENT [None]
  - OEDEMA PERIPHERAL [None]
